FAERS Safety Report 4618367-8 (Version None)
Quarter: 2005Q1

REPORT INFORMATION
  Report Type: 
  Country: None (occurrence: None)
  Receive Date: 20050323
  Receipt Date: 20050310
  Transmission Date: 20050727
  Serious: Yes (Hospitalization)
  Sender: FDA-Public Use
  Company Number: 2005043294

PATIENT
  Sex: Male
  Weight: 103 kg

DRUGS (1)
  1. CABERGOLINE [Suspect]
     Indication: PARKINSON'S DISEASE
     Dosage: 3 MG, ORAL
     Route: 048

REACTIONS (3)
  - HAEMOPTYSIS [None]
  - INFECTION [None]
  - PULMONARY EMBOLISM [None]
